FAERS Safety Report 21858681 (Version 1)
Quarter: 2023Q1

REPORT INFORMATION
  Report Type: Spontaneous
  Country: JP (occurrence: JP)
  Receive Date: 20230113
  Receipt Date: 20230113
  Transmission Date: 20230418
  Serious: Yes (Other)
  Sender: FDA-Public Use
  Company Number: JP-AUROBINDO-AUR-APL-2023-001407

PATIENT
  Age: 3 Year
  Sex: Male

DRUGS (8)
  1. MELPHALAN [Suspect]
     Active Substance: MELPHALAN
     Indication: Congenital retinoblastoma
     Dosage: UNK
     Route: 013
  2. MELPHALAN [Suspect]
     Active Substance: MELPHALAN
     Dosage: UNK
  3. CARBOPLATIN [Suspect]
     Active Substance: CARBOPLATIN
     Indication: Congenital retinoblastoma
     Dosage: UNK
     Route: 065
  4. CYCLOPHOSPHAMIDE [Suspect]
     Active Substance: CYCLOPHOSPHAMIDE
     Indication: Congenital retinoblastoma
     Dosage: UNK
     Route: 065
  5. DOXORUBICIN [Suspect]
     Active Substance: DOXORUBICIN
     Indication: Congenital retinoblastoma
     Dosage: UNK
     Route: 065
  6. ETOPOSIDE [Suspect]
     Active Substance: ETOPOSIDE
     Indication: Congenital retinoblastoma
     Dosage: UNK
     Route: 065
  7. TOPOTECAN [Suspect]
     Active Substance: TOPOTECAN HYDROCHLORIDE
     Indication: Congenital retinoblastoma
     Dosage: UNK
     Route: 013
  8. VINCRISTINE [Suspect]
     Active Substance: VINCRISTINE
     Indication: Congenital retinoblastoma
     Dosage: UNK
     Route: 065

REACTIONS (2)
  - Staphyloma [Unknown]
  - Drug ineffective [Unknown]
